FAERS Safety Report 9105536 (Version 2)
Quarter: 2013Q1

REPORT INFORMATION
  Report Type: Spontaneous
  Country: CA (occurrence: CA)
  Receive Date: 20130220
  Receipt Date: 20130225
  Transmission Date: 20140127
  Serious: Yes (Hospitalization)
  Sender: FDA-Public Use
  Company Number: CA-ABBOTT-13P-028-1050465-00

PATIENT
  Age: 30 Year
  Sex: Female
  Weight: 77.5 kg

DRUGS (4)
  1. LUPRON DEPOT [Suspect]
     Indication: ENDOMETRIOSIS
     Dates: start: 20121109, end: 20130122
  2. LUPRON DEPOT [Suspect]
     Indication: MENSTRUATION IRREGULAR
  3. PROMETRIUM [Concomitant]
     Indication: PRODUCT USED FOR UNKNOWN INDICATION
     Dosage: AT BEDTIME
     Dates: start: 20121205
  4. ESTRACE [Concomitant]
     Indication: PRODUCT USED FOR UNKNOWN INDICATION
     Dosage: 1-2 TABS OF 0.5 MG
     Dates: start: 20121205

REACTIONS (5)
  - Cardiac flutter [Recovering/Resolving]
  - Palpitations [Unknown]
  - Paraesthesia [Unknown]
  - Electrocardiogram abnormal [Unknown]
  - Dyspnoea [Not Recovered/Not Resolved]
